FAERS Safety Report 8447653-9 (Version None)
Quarter: 2012Q2

REPORT INFORMATION
  Report Type: 
  Country: None (occurrence: None)
  Receive Date: 20120619
  Receipt Date: 20120613
  Transmission Date: 20120825
  Serious: Yes (Other)
  Sender: FDA-Public Use
  Company Number: NL-PFIZER INC-2012143017

PATIENT
  Sex: Male

DRUGS (1)
  1. SILDENAFIL CITRATE [Suspect]

REACTIONS (5)
  - EJACULATION DISORDER [None]
  - HAEMATOSPERMIA [None]
  - GROIN PAIN [None]
  - ORGASM ABNORMAL [None]
  - ERECTION INCREASED [None]
